FAERS Safety Report 9670862 (Version 3)
Quarter: 2013Q4

REPORT INFORMATION
  Report Type: Report from Study
  Country: AU (occurrence: AU)
  Receive Date: 20131106
  Receipt Date: 20131118
  Transmission Date: 20140711
  Serious: Yes (Other)
  Sender: FDA-Public Use
  Company Number: PHHY2013AU097129

PATIENT
  Age: 67 Year
  Sex: Male

DRUGS (1)
  1. ACLASTA [Suspect]
     Dosage: 5 MG, UNK
     Route: 042
     Dates: start: 20120717, end: 20131029

REACTIONS (8)
  - Morganella infection [Recovered/Resolved]
  - Systemic candida [Recovered/Resolved]
  - Renal failure [Unknown]
  - Blood creatinine decreased [Recovered/Resolved]
  - Blood phosphorus decreased [Unknown]
  - Creatinine urine decreased [Unknown]
  - Creatinine renal clearance decreased [Unknown]
  - Dry eye [Not Recovered/Not Resolved]
